FAERS Safety Report 13640773 (Version 1)
Quarter: 2017Q2

REPORT INFORMATION
  Report Type: Spontaneous
  Country: US (occurrence: US)
  Receive Date: 20170612
  Receipt Date: 20170612
  Transmission Date: 20170830
  Serious: Yes (Hospitalization, Other)
  Sender: FDA-Public Use
  Company Number: US-BAXTER-2017BAX022939

PATIENT
  Sex: Female

DRUGS (25)
  1. NEULASTA [Suspect]
     Active Substance: PEGFILGRASTIM
     Indication: PRODUCT USED FOR UNKNOWN INDICATION
     Dosage: CYCLE 1
     Route: 065
  2. FASLODEX [Suspect]
     Active Substance: FULVESTRANT
     Indication: METASTASES TO LIVER
  3. FASLODEX [Suspect]
     Active Substance: FULVESTRANT
     Indication: METASTASES TO BONE
  4. CIPRO [Suspect]
     Active Substance: CIPROFLOXACIN HYDROCHLORIDE
     Indication: UPPER RESPIRATORY TRACT INFECTION
     Route: 065
  5. DENOSUMAB [Suspect]
     Active Substance: DENOSUMAB
     Indication: METASTASES TO BONE
  6. CYCLOPHOSPHAMIDE FOR INJECTION, USP [Suspect]
     Active Substance: CYCLOPHOSPHAMIDE
     Indication: INVASIVE DUCTAL BREAST CARCINOMA
     Route: 065
  7. ADRIAMYCIN [Suspect]
     Active Substance: DOXORUBICIN HYDROCHLORIDE
     Indication: INVASIVE DUCTAL BREAST CARCINOMA
     Route: 065
  8. NICOTINE TRANSDERMAL SYSTEM [Suspect]
     Active Substance: NICOTINE
     Indication: PALMAR-PLANTAR ERYTHRODYSAESTHESIA SYNDROME
     Route: 065
  9. TAMOXIFEN [Suspect]
     Active Substance: TAMOXIFEN
     Indication: METASTASES TO SKIN
     Route: 065
  10. IBRANCE [Suspect]
     Active Substance: PALBOCICLIB
     Indication: METASTASES TO LYMPH NODES
     Route: 065
  11. XELODA [Suspect]
     Active Substance: CAPECITABINE
     Indication: BREAST CANCER RECURRENT
     Route: 065
  12. DOXEPIN [Suspect]
     Active Substance: DOXEPIN
     Indication: INSOMNIA
     Route: 065
  13. DENOSUMAB [Suspect]
     Active Substance: DENOSUMAB
     Indication: METASTASES TO LYMPH NODES
     Route: 065
  14. XELODA [Suspect]
     Active Substance: CAPECITABINE
     Indication: PRODUCT USED FOR UNKNOWN INDICATION
     Dosage: COMPLETED 4 CYCLES
     Route: 065
     Dates: start: 20141008
  15. IBRANCE [Suspect]
     Active Substance: PALBOCICLIB
     Indication: METASTASES TO LIVER
  16. IBRANCE [Suspect]
     Active Substance: PALBOCICLIB
     Indication: METASTASES TO BONE
  17. IXEMPRA [Suspect]
     Active Substance: IXABEPILONE
     Indication: PRODUCT USED FOR UNKNOWN INDICATION
     Dosage: COMPLETED 4 CYCLES
     Route: 065
     Dates: start: 20141008
  18. NEURONTIN [Suspect]
     Active Substance: GABAPENTIN
     Indication: NEURALGIA
     Route: 065
  19. EFFEXOR [Suspect]
     Active Substance: VENLAFAXINE HYDROCHLORIDE
     Indication: HOT FLUSH
     Route: 065
  20. DENOSUMAB [Suspect]
     Active Substance: DENOSUMAB
     Indication: METASTASES TO LIVER
  21. NORVASC [Suspect]
     Active Substance: AMLODIPINE BESYLATE
     Indication: BLOOD PRESSURE INCREASED
     Route: 065
  22. TAXOTERE [Suspect]
     Active Substance: DOCETAXEL
     Indication: INVASIVE DUCTAL BREAST CARCINOMA
     Route: 065
  23. MS CONTIN [Suspect]
     Active Substance: MORPHINE SULFATE
     Indication: ARTHRALGIA
     Route: 065
  24. MS CONTIN [Suspect]
     Active Substance: MORPHINE SULFATE
     Indication: PAIN IN EXTREMITY
  25. FASLODEX [Suspect]
     Active Substance: FULVESTRANT
     Indication: METASTASES TO LYMPH NODES
     Route: 065

REACTIONS (49)
  - Diarrhoea [Recovered/Resolved]
  - Medical device site pain [Unknown]
  - Hot flush [Unknown]
  - Fatigue [Unknown]
  - Rash [Recovering/Resolving]
  - Nausea [Recovered/Resolved]
  - Vomiting [Recovered/Resolved]
  - Anaemia [Unknown]
  - Depression [Unknown]
  - Hypokinesia [Unknown]
  - Neuralgia [Unknown]
  - Arthralgia [Recovering/Resolving]
  - Pain [Unknown]
  - Dizziness [Unknown]
  - Metastases to lymph nodes [Unknown]
  - Bone pain [Unknown]
  - Breast pain [Unknown]
  - Back pain [Unknown]
  - Upper respiratory tract infection [Unknown]
  - Disease progression [Unknown]
  - Fatigue [Recovered/Resolved]
  - Night sweats [Unknown]
  - Bursitis [Unknown]
  - Tachycardia [Unknown]
  - Breast cancer recurrent [Unknown]
  - Gastroenteritis viral [Unknown]
  - Metrorrhagia [Recovered/Resolved]
  - Toothache [Unknown]
  - Insomnia [Recovering/Resolving]
  - Vomiting [Unknown]
  - Weight increased [Unknown]
  - Blood pressure increased [Unknown]
  - Tumour pain [Unknown]
  - Metastases to liver [Unknown]
  - Metastases to skin [Unknown]
  - Neutropenia [Unknown]
  - Urinary tract infection [Unknown]
  - Postmastectomy lymphoedema syndrome [Unknown]
  - Palmar-plantar erythrodysaesthesia syndrome [Unknown]
  - Metastases to bone [Unknown]
  - Metastases to peritoneum [Unknown]
  - Cholangiocarcinoma [Unknown]
  - Pain in extremity [Recovering/Resolving]
  - Pain in extremity [Unknown]
  - Mucosal inflammation [Unknown]
  - Bronchitis [Unknown]
  - Vitreous floaters [Unknown]
  - Myalgia [Unknown]
  - Nausea [Unknown]
